FAERS Safety Report 20612106 (Version 1)
Quarter: 2022Q1

REPORT INFORMATION
  Report Type: Spontaneous
  Country: US (occurrence: US)
  Receive Date: 20220318
  Receipt Date: 20220318
  Transmission Date: 20220423
  Serious: Yes (Hospitalization)
  Sender: FDA-Public Use
  Company Number: US-ABBVIE-22K-163-4228100-00

PATIENT
  Age: 89 Year
  Sex: Female
  Weight: 49.940 kg

DRUGS (10)
  1. RINVOQ [Suspect]
     Active Substance: UPADACITINIB
     Indication: Rheumatoid arthritis
     Route: 048
     Dates: start: 2019, end: 20210101
  2. METOPROLOL [Concomitant]
     Active Substance: METOPROLOL
     Indication: Cardiac disorder
  3. CANDESARTAN [Concomitant]
     Active Substance: CANDESARTAN
     Indication: Cardiac disorder
  4. COUMADIN [Concomitant]
     Active Substance: WARFARIN SODIUM
     Indication: Cardiac disorder
  5. LASIX [Concomitant]
     Active Substance: FUROSEMIDE
     Indication: Cardiac disorder
  6. PROLIA [Concomitant]
     Active Substance: DENOSUMAB
     Indication: Bone disorder
  7. ASPIRIN [Concomitant]
     Active Substance: ASPIRIN
     Indication: Cardiac disorder
  8. COVID-19 VACCINE [Concomitant]
     Indication: COVID-19 immunisation
     Route: 030
     Dates: start: 202101, end: 202101
  9. COVID-19 VACCINE [Concomitant]
     Route: 030
     Dates: start: 202102, end: 202102
  10. COVID-19 VACCINE [Concomitant]
     Route: 030
     Dates: start: 202109, end: 202109

REACTIONS (1)
  - Pneumonia [Recovering/Resolving]

NARRATIVE: CASE EVENT DATE: 20220101
